FAERS Safety Report 8232717-5 (Version None)
Quarter: 2012Q1

REPORT INFORMATION
  Report Type: 
  Country: None (occurrence: None)
  Receive Date: 20120323
  Receipt Date: 20120309
  Transmission Date: 20120608
  Serious: Yes (Hospitalization, Other)
  Sender: FDA-Public Use
  Company Number: PHHY2012JP018180

PATIENT
  Age: 40 Year
  Sex: Female

DRUGS (9)
  1. PREDNISOLONE [Concomitant]
     Indication: MIXED CONNECTIVE TISSUE DISEASE
     Dosage: 10 MG, UNK
     Route: 048
  2. PREDNISOLONE [Concomitant]
     Dosage: 20 MG, UNK
     Dates: start: 20070601
  3. NEORAL [Suspect]
     Dosage: 50 MG, UNK
     Route: 048
     Dates: start: 20110101
  4. PREDNISOLONE [Concomitant]
     Dosage: 15 MG, UNK
  5. PREDNISOLONE [Concomitant]
     Dosage: 10 MG, UNK
     Dates: start: 20100301
  6. NEORAL [Suspect]
     Dosage: 50 MG, QD
     Route: 048
     Dates: start: 20110210, end: 20110619
  7. PREDNISOLONE [Concomitant]
     Dosage: 50 MG, UNK
  8. PREDNISOLONE [Concomitant]
     Dosage: 20 MG, UNK
     Route: 048
  9. NEORAL [Suspect]
     Indication: MIXED CONNECTIVE TISSUE DISEASE
     Dosage: 50 MG, UNK
     Route: 048
     Dates: start: 20070601

REACTIONS (3)
  - SYSTEMIC LUPUS ERYTHEMATOSUS [None]
  - PREMATURE LABOUR [None]
  - MATERNAL EXPOSURE DURING PREGNANCY [None]
